FAERS Safety Report 8450901-2 (Version None)
Quarter: 2012Q2

REPORT INFORMATION
  Report Type: 
  Country: None (occurrence: None)
  Receive Date: 20120615
  Receipt Date: 20120615
  Transmission Date: 20120825
  Serious: Yes (Other)
  Sender: FDA-Public Use
  Company Number: None

PATIENT
  Age: 60 Year
  Sex: Female
  Weight: 75.5 kg

DRUGS (1)
  1. CHANTIX [Suspect]
     Indication: SMOKING CESSATION THERAPY
     Dosage: 4 AM + 2 PM PILLS,   4 DAYS
     Dates: start: 20110424, end: 20110427

REACTIONS (6)
  - ERYTHEMA [None]
  - SWELLING [None]
  - BLISTER [None]
  - RASH [None]
  - SKIN EXFOLIATION [None]
  - URTICARIA [None]
